FAERS Safety Report 5211948-2 (Version None)
Quarter: 2007Q1

REPORT INFORMATION
  Report Type: 
  Country: None (occurrence: None)
  Receive Date: 20070118
  Receipt Date: 20070110
  Transmission Date: 20070707
  Serious: Yes (Life-Threatening)
  Sender: FDA-Public Use
  Company Number: US-AVENTIS-200710206US

PATIENT
  Sex: Male

DRUGS (2)
  1. LOVENOX [Suspect]
  2. LOVENOX [Suspect]

REACTIONS (5)
  - BRADYCARDIA [None]
  - CARDIAC ARREST [None]
  - CHEST DISCOMFORT [None]
  - FEELING ABNORMAL [None]
  - PALLOR [None]
